FAERS Safety Report 23034570 (Version 1)
Quarter: 2023Q4

REPORT INFORMATION
  Report Type: Spontaneous
  Country: US (occurrence: None)
  Receive Date: 20231005
  Receipt Date: 20231005
  Transmission Date: 20240109
  Serious: Yes (unspecified)
  Sender: FDA-Public Use
  Company Number: None

PATIENT
  Age: 67 Year
  Sex: Female
  Weight: 86.4 kg

DRUGS (4)
  1. RISEDRONATE SODIUM [Suspect]
     Active Substance: RISEDRONATE SODIUM
     Indication: Osteoporosis
     Dosage: OTHER FREQUENCY : EVERY 7 DAYS;?
     Route: 048
     Dates: start: 20230822, end: 20230925
  2. PROLIA [Suspect]
     Active Substance: DENOSUMAB
  3. FOSAMAX [Suspect]
     Active Substance: ALENDRONATE SODIUM
  4. RISEDRONATE SODIUM [Concomitant]
     Active Substance: RISEDRONATE SODIUM

REACTIONS (3)
  - Adverse drug reaction [None]
  - Erythema [None]
  - Swelling face [None]

NARRATIVE: CASE EVENT DATE: 20230925
